FAERS Safety Report 8385751-9 (Version None)
Quarter: 2012Q2

REPORT INFORMATION
  Report Type: 
  Country: None (occurrence: None)
  Receive Date: 20120523
  Receipt Date: 20120523
  Transmission Date: 20120825
  Serious: Yes (Other)
  Sender: FDA-Public Use
  Company Number: None

PATIENT
  Sex: Male

DRUGS (1)
  1. NUTROPIN [Suspect]
     Dosage: 2MG ALT 2.2MG DAILY SUBQ
     Route: 058

REACTIONS (2)
  - OSTEOCHONDROSIS [None]
  - NEOPLASM [None]
